FAERS Safety Report 7105515-3 (Version None)
Quarter: 2010Q4

REPORT INFORMATION
  Report Type: 
  Country: None (occurrence: None)
  Receive Date: 20101116
  Receipt Date: 20101101
  Transmission Date: 20110411
  Serious: Yes (Other)
  Sender: FDA-Public Use
  Company Number: FI-ROCHE-738474

PATIENT
  Sex: Female

DRUGS (3)
  1. HERCEPTIN [Suspect]
     Dosage: FORM: INFUSION, FREQUENCY: THREE TIMES NOS
     Route: 042
  2. DOCETAXEL [Concomitant]
     Dosage: FORM: INFUSION, FREQUENCY: THREE TIMES NOS
     Route: 042
  3. CEF REGIMEN [Concomitant]
     Dosage: FREQUENCY: TWICE
     Route: 065

REACTIONS (2)
  - ERYSIPELAS [None]
  - POST PROCEDURAL SWELLING [None]
